FAERS Safety Report 19441110 (Version 1)
Quarter: 2021Q2

REPORT INFORMATION
  Report Type: Spontaneous
  Country: US (occurrence: US)
  Receive Date: 20210617
  Receipt Date: 20210617
  Transmission Date: 20210717
  Serious: Yes (Hospitalization, Disabling, Other)
  Sender: FDA-Public Use
  Company Number: None

PATIENT
  Age: 31 Year
  Sex: Male
  Weight: 157.5 kg

DRUGS (1)
  1. NORTRIPTYLINE 25MG CAPSULES [Suspect]
     Active Substance: NORTRIPTYLINE
     Indication: MIGRAINE
     Dosage: ?          QUANTITY:2 CAPSULE(S);?
     Route: 048

REACTIONS (3)
  - Hypertensive crisis [None]
  - Chest pain [None]
  - Myocardial infarction [None]

NARRATIVE: CASE EVENT DATE: 20210613
